FAERS Safety Report 7556243-1 (Version None)
Quarter: 2011Q2

REPORT INFORMATION
  Report Type: 
  Country: None (occurrence: None)
  Receive Date: 20110620
  Receipt Date: 20110615
  Transmission Date: 20111010
  Serious: No
  Sender: FDA-Public Use
  Company Number: US-PFIZER INC-2011131366

PATIENT
  Sex: Female

DRUGS (3)
  1. MEDROXYPROGESTERONE ACETATE [Suspect]
     Dosage: 2.5 MG, DAILY
     Route: 048
     Dates: start: 20110601
  2. MONTELUKAST SODIUM [Concomitant]
     Indication: ASTHMA
     Dosage: UNK, AS NEEDED
  3. MEDROXYPROGESTERONE ACETATE [Suspect]
     Indication: HORMONE REPLACEMENT THERAPY
     Dosage: UNK
     Route: 048
     Dates: start: 20110611, end: 20110601

REACTIONS (1)
  - ABDOMINAL DISTENSION [None]
